FAERS Safety Report 5758598-7 (Version None)
Quarter: 2008Q2

REPORT INFORMATION
  Report Type: 
  Country: None (occurrence: None)
  Receive Date: 20080604
  Receipt Date: 20080526
  Transmission Date: 20081010
  Serious: Yes (Death, Hospitalization)
  Sender: FDA-Public Use
  Company Number: B0522370A

PATIENT
  Age: 48 Year
  Sex: Female

DRUGS (8)
  1. ARIXTRA [Suspect]
     Indication: THROMBOSIS PROPHYLAXIS
     Dosage: 2.5MG PER DAY
     Route: 058
     Dates: start: 20080318, end: 20080415
  2. ARIXTRA [Suspect]
     Dosage: 7.5MG PER DAY
     Route: 058
     Dates: start: 20080405, end: 20080411
  3. MEPRONIZINE [Concomitant]
     Dosage: 1TAB PER DAY
     Route: 048
  4. DEPAMIDE [Concomitant]
     Dosage: 1500MG PER DAY
     Route: 065
  5. EFFEXOR [Concomitant]
     Dosage: 375MG PER DAY
     Route: 065
  6. STABLON [Concomitant]
     Dosage: 37.5MG PER DAY
     Route: 065
  7. TRIMEPRAZINE TAB [Concomitant]
     Dosage: 20DROP AT NIGHT
     Route: 048
  8. PANTOPRAZOLE SODIUM [Concomitant]
     Dosage: 40MG PER DAY
     Route: 065

REACTIONS (4)
  - CATHETER THROMBOSIS [None]
  - DEATH [None]
  - DRUG INEFFECTIVE [None]
  - POST PROCEDURAL HAEMORRHAGE [None]
